FAERS Safety Report 6089166-8 (Version None)
Quarter: 2009Q1

REPORT INFORMATION
  Report Type: 
  Country: None (occurrence: None)
  Receive Date: 20090224
  Receipt Date: 20090212
  Transmission Date: 20090719
  Serious: Yes (Other)
  Sender: FDA-Public Use
  Company Number: BR-PFIZER INC-2009173208

PATIENT

DRUGS (5)
  1. ADRIBLASTIN [Suspect]
     Indication: BREAST CANCER
     Dosage: UNK
     Dates: start: 20080101, end: 20081001
  2. TAXOL [Suspect]
     Indication: BREAST CANCER
  3. DORMONID [Concomitant]
     Indication: SEDATIVE THERAPY
  4. ENALAPRIL [Suspect]
     Indication: HYPERTENSION
  5. CYCLOPHOSPHAMIDE [Concomitant]

REACTIONS (1)
  - IMPAIRED HEALING [None]
